FAERS Safety Report 5326816-5 (Version None)
Quarter: 2007Q2

REPORT INFORMATION
  Report Type: 
  Country: None (occurrence: None)
  Receive Date: 20070516
  Receipt Date: 20070504
  Transmission Date: 20071010
  Serious: Yes (Hospitalization, Other)
  Sender: FDA-Public Use
  Company Number: US-PFIZER INC-2007037888

PATIENT

DRUGS (1)
  1. DETROL LA [Suspect]

REACTIONS (1)
  - ATRIAL FIBRILLATION [None]
